FAERS Safety Report 11057436 (Version 1)
Quarter: 2015Q2

REPORT INFORMATION
  Report Type: Spontaneous
  Country: US (occurrence: US)
  Receive Date: 20150422
  Receipt Date: 20150422
  Transmission Date: 20150821
  Serious: No
  Sender: FDA-Public Use
  Company Number: US-ELI_LILLY_AND_COMPANY-US201503008543

PATIENT
  Sex: Female
  Weight: 100 kg

DRUGS (11)
  1. ASPIRIN                            /00002701/ [Concomitant]
     Active Substance: ASPIRIN
     Indication: PAIN
     Dosage: 325 MG, BID
  2. PRAVASTATIN [Concomitant]
     Active Substance: PRAVASTATIN\PRAVASTATIN SODIUM
     Indication: BLOOD CHOLESTEROL
     Dosage: 40 MG, QD
  3. LYRICA [Suspect]
     Active Substance: PREGABALIN
     Indication: FIBROMYALGIA
     Dosage: 200 MG, BID
     Dates: start: 2005
  4. MOTRIM                             /00158501/ [Concomitant]
     Active Substance: SULFAMETHOXAZOLE\TRIMETHOPRIM
     Indication: PAIN
     Dosage: 800 MG, TID
  5. FISH OIL [Concomitant]
     Active Substance: FISH OIL
     Dosage: 1 DF, QD
  6. ULTRA VITAMIN D3 [Concomitant]
     Dosage: 20000 IU, WEEKLY (1/W)
  7. CELEBREX [Concomitant]
     Active Substance: CELECOXIB
     Indication: POLYNEUROPATHY
     Dosage: 400 MG, QD
  8. LASIX [Concomitant]
     Active Substance: FUROSEMIDE
     Indication: SWELLING
     Dosage: 40 MG, QD
  9. CYMBALTA [Suspect]
     Active Substance: DULOXETINE HYDROCHLORIDE
     Indication: NEUROPATHY PERIPHERAL
     Dosage: 60 MG, QD
  10. TYLENOL [Concomitant]
     Active Substance: ACETAMINOPHEN
     Indication: PAIN
     Dosage: 1000 MG, BID
  11. CALCIUM + VITAMIN D                /01483701/ [Concomitant]
     Active Substance: CALCIUM\VITAMIN D
     Dosage: 1 DF, BID

REACTIONS (2)
  - Off label use [Not Recovered/Not Resolved]
  - Oedema [Unknown]
